FAERS Safety Report 14789300 (Version 6)
Quarter: 2018Q2

REPORT INFORMATION
  Report Type: Spontaneous
  Country: BR (occurrence: BR)
  Receive Date: 20180423
  Receipt Date: 20180618
  Transmission Date: 20180711
  Serious: Yes (Death, Life-Threatening, Hospitalization)
  Sender: FDA-Public Use
  Company Number: PHHY2018BR069974

PATIENT
  Sex: Female
  Weight: 75 kg

DRUGS (3)
  1. EXELON PATCH [Suspect]
     Active Substance: RIVASTIGMINE
     Indication: DEMENTIA ALZHEIMER^S TYPE
     Route: 062
  2. SYSTANE (HYPROMELLOSE 2910 (4000 MPA.S)) [Suspect]
     Active Substance: HYPROMELLOSE 2910 (4000 MPA.S)
     Indication: PRODUCT USED FOR UNKNOWN INDICATION
     Route: 047
  3. DIOVAN [Suspect]
     Active Substance: VALSARTAN
     Indication: HYPERTENSION
     Route: 048

REACTIONS (9)
  - Eating disorder [Fatal]
  - Metastasis [Fatal]
  - Cerebrovascular accident [Fatal]
  - Gait disturbance [Fatal]
  - Pancreatic carcinoma [Fatal]
  - Cystitis [Unknown]
  - Coma [Unknown]
  - Paralysis [Fatal]
  - Abdominal pain upper [Fatal]
